FAERS Safety Report 14921935 (Version 1)
Quarter: 2018Q2

REPORT INFORMATION
  Report Type: Other
  Country: GB (occurrence: GB)
  Receive Date: 20180522
  Receipt Date: 20180522
  Transmission Date: 20180711
  Serious: Yes (Disabling)
  Sender: FDA-Public Use
  Company Number: GB-LUPIN PHARMACEUTICALS INC.-2017-02287

PATIENT
  Age: 58 Year
  Sex: Male
  Weight: 106 kg

DRUGS (1)
  1. QUETIAPINE. [Suspect]
     Active Substance: QUETIAPINE
     Indication: PRODUCT USED FOR UNKNOWN INDICATION
     Dosage: UNK
     Route: 065
     Dates: start: 20120608, end: 20150608

REACTIONS (2)
  - Parkinsonism [Not Recovered/Not Resolved]
  - Nocturia [Not Recovered/Not Resolved]
